FAERS Safety Report 24163786 (Version 2)
Quarter: 2024Q3

REPORT INFORMATION
  Report Type: Other
  Country: HR (occurrence: HR)
  Receive Date: 20240801
  Receipt Date: 20240806
  Transmission Date: 20241017
  Serious: Yes (Death, Life-Threatening, Hospitalization)
  Sender: INCYTE
  Company Number: None

PATIENT

DRUGS (1)
  1. PEMAZYRE [Suspect]
     Active Substance: PEMIGATINIB
     Indication: Gallbladder cancer metastatic
     Dosage: 13,5 MG FOR 14 DAYS, FOLLOWED BY A 7-DAY BREAK
     Route: 048
     Dates: start: 20231025

REACTIONS (1)
  - Calciphylaxis [Fatal]

NARRATIVE: CASE EVENT DATE: 20240508
